FAERS Safety Report 18055322 (Version 4)
Quarter: 2021Q4

REPORT INFORMATION
  Report Type: Spontaneous
  Country: US (occurrence: US)
  Receive Date: 20200722
  Receipt Date: 20211216
  Transmission Date: 20220303
  Serious: Yes (Other)
  Sender: FDA-Public Use
  Company Number: US-BIOGENIDEC-2012BI014556

PATIENT
  Age: 61 Year
  Sex: Male

DRUGS (4)
  1. TYSABRI [Suspect]
     Active Substance: NATALIZUMAB
     Indication: Multiple sclerosis
     Route: 042
     Dates: start: 20120111, end: 20180119
  2. TYSABRI [Suspect]
     Active Substance: NATALIZUMAB
     Route: 042
     Dates: start: 20191213
  3. TYSABRI [Suspect]
     Active Substance: NATALIZUMAB
     Route: 065
  4. OCREVUS [Suspect]
     Active Substance: OCRELIZUMAB
     Indication: Multiple sclerosis
     Route: 042

REACTIONS (19)
  - Diplegia [Recovered/Resolved]
  - Rash [Not Recovered/Not Resolved]
  - Paraesthesia [Not Recovered/Not Resolved]
  - Memory impairment [Recovered/Resolved]
  - Gait disturbance [Not Recovered/Not Resolved]
  - Urinary tract disorder [Not Recovered/Not Resolved]
  - Prescribed underdose [Not Recovered/Not Resolved]
  - Drug intolerance [Recovered/Resolved]
  - Musculoskeletal disorder [Not Recovered/Not Resolved]
  - Multiple sclerosis relapse [Recovered/Resolved]
  - Cognitive disorder [Recovered/Resolved]
  - Magnetic resonance imaging abnormal [Not Recovered/Not Resolved]
  - Tremor [Not Recovered/Not Resolved]
  - Depression [Not Recovered/Not Resolved]
  - Urinary tract infection [Recovered/Resolved]
  - Fatigue [Recovered/Resolved]
  - Mobility decreased [Unknown]
  - Weight decreased [Unknown]
  - Asthenia [Unknown]

NARRATIVE: CASE EVENT DATE: 20120111
